FAERS Safety Report 5454185-9 (Version None)
Quarter: 2007Q3

REPORT INFORMATION
  Report Type: 
  Country: None (occurrence: None)
  Receive Date: 20070917
  Receipt Date: 20070330
  Transmission Date: 20080115
  Serious: Yes (Other)
  Sender: FDA-Public Use
  Company Number: US-ASTRAZENECA-2006UW11066

PATIENT
  Sex: Male
  Weight: 72.7 kg

DRUGS (2)
  1. SEROQUEL [Suspect]
     Indication: SCHIZOPHRENIA
     Dosage: 200 MG-50 MG
     Route: 048
     Dates: start: 20020101, end: 20050101
  2. ZYPREXA [Suspect]
     Dosage: 300 MG-5 MG
     Dates: start: 19990101, end: 20020101

REACTIONS (1)
  - PANCREATITIS [None]
